FAERS Safety Report 6895140-1 (Version None)
Quarter: 2010Q3

REPORT INFORMATION
  Report Type: 
  Country: None (occurrence: None)
  Receive Date: 20100802
  Receipt Date: 20100720
  Transmission Date: 20110219
  Serious: Yes (Hospitalization)
  Sender: FDA-Public Use
  Company Number: NL-GENENTECH-304599

PATIENT
  Sex: Female
  Weight: 78 kg

DRUGS (1)
  1. RITUXIMAB [Suspect]
     Indication: NON-HODGKIN'S LYMPHOMA
     Dosage: 730 MG, UNK
     Route: 042
     Dates: start: 20100518

REACTIONS (1)
  - PULMONARY EMBOLISM [None]
